FAERS Safety Report 18317885 (Version 1)
Quarter: 2020Q3

REPORT INFORMATION
  Report Type: Spontaneous
  Country: GB (occurrence: GB)
  Receive Date: 20200928
  Receipt Date: 20200928
  Transmission Date: 20201103
  Serious: Yes (Death, Other)
  Sender: FDA-Public Use
  Company Number: GB-GILEAD-2020-0496183

PATIENT
  Age: 51 Year
  Sex: Male

DRUGS (1)
  1. EPCLUSA [Suspect]
     Active Substance: SOFOSBUVIR\VELPATASVIR
     Indication: HEPATITIS C
     Dosage: UNK
     Route: 065
     Dates: start: 202003

REACTIONS (6)
  - Death [Fatal]
  - Haemorrhage intracranial [Unknown]
  - Limb mass [Unknown]
  - Rash [Unknown]
  - Myelodysplastic syndrome [Unknown]
  - Contusion [Unknown]

NARRATIVE: CASE EVENT DATE: 20200823
